FAERS Safety Report 4645361-3 (Version None)
Quarter: 2005Q2

REPORT INFORMATION
  Report Type: 
  Country: None (occurrence: None)
  Receive Date: 20050425
  Receipt Date: 20050415
  Transmission Date: 20051028
  Serious: Yes (Life-Threatening, Hospitalization)
  Sender: FDA-Public Use
  Company Number: 2005022971

PATIENT
  Age: 53 Year
  Sex: Male

DRUGS (19)
  1. LIPITOR [Suspect]
     Indication: HYPERLIPIDAEMIA
     Dosage: 10 MG(1 IN 1 D), ORAL
     Route: 048
     Dates: start: 20050104, end: 20050126
  2. VOGLIBOSE (VOGLIBOSE) [Concomitant]
  3. CILOSTAZOL [Concomitant]
  4. DIGOXIN [Concomitant]
  5. AMIODARONE HCL [Concomitant]
  6. WARFARIN SODIUM [Concomitant]
  7. FUROSEMIDE [Concomitant]
  8. CARVEDILOL [Concomitant]
  9. LANSOPRAZOLE [Concomitant]
  10. PIMOBENDAN (PIMOBENDAN) [Concomitant]
  11. SPIRONOLACTONE [Concomitant]
  12. MECOBALAMIN (MECOBALAMIN) [Concomitant]
  13. TOCOPHEROL (TOCOPHEROL) [Concomitant]
  14. BERAPROST (BERAPROST) [Concomitant]
  15. GLIMEPIRIDE [Concomitant]
  16. TICLOPIDINE (TICLOPIDINE) [Concomitant]
  17. ATENOL (ATENOLOL) [Concomitant]
  18. DISOPYRAMIDE [Concomitant]
  19. ENALAPRIL MALEATE [Concomitant]

REACTIONS (2)
  - ANOREXIA [None]
  - HYPERGLYCAEMIC HYPEROSMOLAR NONKETOTIC SYNDROME [None]
